FAERS Safety Report 13668074 (Version 1)
Quarter: 2017Q2

REPORT INFORMATION
  Report Type: Spontaneous
  Country: US (occurrence: US)
  Receive Date: 20170619
  Receipt Date: 20170619
  Transmission Date: 20170830
  Serious: Yes (Other)
  Sender: FDA-Public Use
  Company Number: None

PATIENT
  Age: 69 Year
  Sex: Female
  Weight: 56.7 kg

DRUGS (9)
  1. SIMVASTATIN. [Concomitant]
     Active Substance: SIMVASTATIN
  2. LEVOTHYRONINE [Concomitant]
  3. CALCIUM [Concomitant]
     Active Substance: CALCIUM
  4. SALICYLIC ACID. [Suspect]
     Active Substance: SALICYLIC ACID
     Indication: SKIN PAPILLOMA
     Dosage: ?          QUANTITY:1 DROP(S);?
     Route: 061
     Dates: start: 20170616, end: 20170619
  5. LORAZEPAM. [Concomitant]
     Active Substance: LORAZEPAM
  6. AIR CONCENTRATOR [Concomitant]
  7. VITAMIN D-OMEGA 3 [Concomitant]
  8. ASPIRIN. [Concomitant]
     Active Substance: ASPIRIN
  9. ZANTAC [Concomitant]
     Active Substance: RANITIDINE HYDROCHLORIDE

REACTIONS (3)
  - Condition aggravated [None]
  - Erythema [None]
  - Drug ineffective [None]

NARRATIVE: CASE EVENT DATE: 20170616
